FAERS Safety Report 16743789 (Version 1)
Quarter: 2019Q3

REPORT INFORMATION
  Report Type: Spontaneous
  Country: JP (occurrence: JP)
  Receive Date: 20190827
  Receipt Date: 20190827
  Transmission Date: 20191005
  Serious: Yes (Other)
  Sender: FDA-Public Use
  Company Number: JP-AMGEN-JPNSP2019014891

PATIENT
  Age: 70 Year
  Sex: Female

DRUGS (4)
  1. ENBREL [Suspect]
     Active Substance: ETANERCEPT
     Indication: RHEUMATIC DISORDER
     Dosage: 25 MILLIGRAM
     Route: 065
     Dates: start: 20190125, end: 20190207
  2. PROGRAF [Concomitant]
     Active Substance: TACROLIMUS\TACROLIMUS ANHYDROUS
     Dosage: UNK
     Dates: start: 20080708
  3. ENBREL [Suspect]
     Active Substance: ETANERCEPT
     Indication: RHEUMATIC DISORDER
     Dosage: 50 MILLIGRAM, QWK
     Route: 058
     Dates: start: 20120316, end: 20190124
  4. ENBREL [Suspect]
     Active Substance: ETANERCEPT
     Indication: RHEUMATOID ARTHRITIS
     Dosage: 25 MILLIGRAM
     Route: 065
     Dates: start: 20120316, end: 20190124

REACTIONS (11)
  - Peripheral swelling [Unknown]
  - Infection [Recovered/Resolved]
  - Pain in extremity [Unknown]
  - C-reactive protein increased [Unknown]
  - Blood urea increased [Unknown]
  - Erythema [Unknown]
  - Feeling hot [Unknown]
  - Blood cholesterol increased [Unknown]
  - Inflammation [Unknown]
  - Blood creatinine increased [Unknown]
  - Blood triglycerides increased [Unknown]

NARRATIVE: CASE EVENT DATE: 20190121
